FAERS Safety Report 16515521 (Version 1)
Quarter: 2019Q3

REPORT INFORMATION
  Report Type: Spontaneous
  Country: US (occurrence: US)
  Receive Date: 20190522
  Receipt Date: 20190522
  Transmission Date: 20191004
  Serious: No
  Sender: FDA-Public Use
  Company Number: None

PATIENT
  Age: 51 Year
  Sex: Female

DRUGS (1)
  1. COPAXONE [Suspect]
     Active Substance: GLATIRAMER ACETATE
     Dosage: ?          OTHER FREQUENCY:UNKNOWN;?
     Route: 058
     Dates: start: 201807

REACTIONS (5)
  - Urticaria [None]
  - Throat tightness [None]
  - Erythema [None]
  - Flushing [None]
  - Immediate post-injection reaction [None]

NARRATIVE: CASE EVENT DATE: 20190522
